FAERS Safety Report 6503069-3 (Version None)
Quarter: 2009Q4

REPORT INFORMATION
  Report Type: 
  Country: None (occurrence: None)
  Receive Date: 20091217
  Receipt Date: 20091211
  Transmission Date: 20100525
  Serious: Yes (Hospitalization)
  Sender: FDA-Public Use
  Company Number: US-ROCHE-674322

PATIENT
  Sex: Female
  Weight: 53.1 kg

DRUGS (1)
  1. CAPECITABINE [Suspect]
     Indication: BLADDER CANCER
     Route: 048
     Dates: start: 20091026

REACTIONS (1)
  - HOSPITALISATION [None]
